FAERS Safety Report 19821647 (Version 1)
Quarter: 2021Q3

REPORT INFORMATION
  Report Type: Spontaneous
  Country: US (occurrence: US)
  Receive Date: 20210909
  Receipt Date: 20210909
  Transmission Date: 20211014
  Serious: Yes (Hospitalization)
  Sender: FDA-Public Use
  Company Number: None

PATIENT
  Sex: Male

DRUGS (1)
  1. CAPECITABINE 500MG NOVADOZ PHARMACEUTICALS [Suspect]
     Active Substance: CAPECITABINE
     Indication: COLON CANCER
     Route: 048
     Dates: start: 202012

REACTIONS (7)
  - Metastasis [None]
  - Myalgia [None]
  - Peripheral swelling [None]
  - Arthralgia [None]
  - Pain in extremity [None]
  - Pain [None]
  - Oedema [None]
